FAERS Safety Report 24706845 (Version 1)
Quarter: 2024Q4

REPORT INFORMATION
  Report Type: Spontaneous
  Country: GB (occurrence: GB)
  Receive Date: 20241206
  Receipt Date: 20241206
  Transmission Date: 20250115
  Serious: Yes (Hospitalization, Disabling, Other)
  Sender: PFIZER
  Company Number: None

PATIENT
  Age: 43 Year
  Sex: Female
  Weight: 44 kg

DRUGS (1)
  1. RITUXIMAB [Suspect]
     Active Substance: RITUXIMAB
     Dosage: UNK

REACTIONS (2)
  - Autoimmune encephalopathy [Not Recovered/Not Resolved]
  - Akathisia [Unknown]

NARRATIVE: CASE EVENT DATE: 20241013
